FAERS Safety Report 8622592-9 (Version None)
Quarter: 2012Q3

REPORT INFORMATION
  Report Type: 
  Country: None (occurrence: None)
  Receive Date: 20120810
  Receipt Date: 20120725
  Transmission Date: 20120928
  Serious: Yes (Other)
  Sender: FDA-Public Use
  Company Number: PI-07686

PATIENT
  Age: 61 Year
  Sex: Male

DRUGS (2)
  1. CHLORAPREP [Suspect]
     Indication: PREOPERATIVE CARE
     Dosage: ONCE, TOPICAL
     Route: 061
     Dates: start: 20090701
  2. CHLORAPREP [Suspect]
     Indication: THERAPEUTIC SKIN CARE TOPICAL
     Dosage: ONCE, TOPICAL
     Route: 061
     Dates: start: 20090701

REACTIONS (5)
  - APPLICATION SITE RASH [None]
  - BURNS SECOND DEGREE [None]
  - CHEMICAL INJURY [None]
  - APPLICATION SITE PRURITUS [None]
  - APPLICATION SITE PAIN [None]
